FAERS Safety Report 23630597 (Version 5)
Quarter: 2024Q3

REPORT INFORMATION
  Report Type: Report from Study
  Country: RU (occurrence: RU)
  Receive Date: 20240314
  Receipt Date: 20240708
  Transmission Date: 20241017
  Serious: Yes (Other)
  Sender: ROCHE
  Company Number: RU-ROCHE-3513918

PATIENT
  Age: 42 Year
  Sex: Male

DRUGS (9)
  1. GLOFITAMAB [Suspect]
     Active Substance: GLOFITAMAB
     Indication: Diffuse large B-cell lymphoma
     Dosage: 20/FEB/2024 (SECOND DOSE) - 10 MG?ON 05/MAR/2024, HE RECEIVED MOST RECENT DOSE OF 30 MG OF GLOFITAMA
     Route: 065
     Dates: start: 20240214
  2. OBINUTUZUMAB [Suspect]
     Active Substance: OBINUTUZUMAB
     Indication: Diffuse large B-cell lymphoma
     Route: 042
     Dates: start: 20240207
  3. FILGRASTIM [Concomitant]
     Active Substance: FILGRASTIM
     Route: 058
     Dates: start: 20240215, end: 20240217
  4. CEFTRIAXONE [Concomitant]
     Active Substance: CEFTRIAXONE\CEFTRIAXONE SODIUM
     Dates: start: 20240215, end: 20240219
  5. LIDOCAINE [Concomitant]
     Active Substance: LIDOCAINE
     Route: 054
  6. HEPATROMBIN [Concomitant]
     Route: 061
  7. ACETAMINOPHEN [Concomitant]
     Active Substance: ACETAMINOPHEN
     Route: 048
  8. ACETAMINOPHEN [Concomitant]
     Active Substance: ACETAMINOPHEN
  9. CHLOROPYRAMINE HYDROCHLORIDE [Concomitant]
     Active Substance: CHLOROPYRAMINE HYDROCHLORIDE
     Route: 048

REACTIONS (10)
  - Pyrexia [Unknown]
  - Neutropenia [Unknown]
  - Anal fissure [Not Recovered/Not Resolved]
  - Hyperphosphataemia [Unknown]
  - Aspartate aminotransferase increased [Unknown]
  - Cytokine release syndrome [Not Recovered/Not Resolved]
  - Alanine aminotransferase increased [Unknown]
  - Night sweats [Not Recovered/Not Resolved]
  - Fatigue [Not Recovered/Not Resolved]
  - Oedema peripheral [Not Recovered/Not Resolved]

NARRATIVE: CASE EVENT DATE: 20240215
